FAERS Safety Report 6781406-2 (Version None)
Quarter: 2010Q2

REPORT INFORMATION
  Report Type: 
  Country: None (occurrence: None)
  Receive Date: 20100621
  Receipt Date: 20100326
  Transmission Date: 20101027
  Serious: No
  Sender: FDA-Public Use
  Company Number: US-AMGEN-KDL403346

PATIENT
  Sex: Female

DRUGS (3)
  1. PROCRIT [Suspect]
     Indication: ANAEMIA OF MALIGNANT DISEASE
     Dates: start: 20100319
  2. ARANESP [Suspect]
     Indication: ANAEMIA OF MALIGNANT DISEASE
  3. UNSPECIFIED ANTINEOPLASTIC AGENT [Concomitant]
     Route: 048

REACTIONS (3)
  - FATIGUE [None]
  - HAEMATOCRIT DECREASED [None]
  - MALAISE [None]
